FAERS Safety Report 6662805-6 (Version None)
Quarter: 2010Q2

REPORT INFORMATION
  Report Type: 
  Country: None (occurrence: None)
  Receive Date: 20100401
  Receipt Date: 20100323
  Transmission Date: 20101027
  Serious: No
  Sender: FDA-Public Use
  Company Number: US-BIOGENIDEC-2010BI009898

PATIENT
  Age: 35 Year
  Sex: Female

DRUGS (1)
  1. AVONEX [Suspect]
     Indication: MULTIPLE SCLEROSIS
     Route: 030
     Dates: start: 20000107

REACTIONS (7)
  - BREAST TENDERNESS [None]
  - CONSTIPATION [None]
  - CRYING [None]
  - DYSMENORRHOEA [None]
  - INJECTION SITE PAIN [None]
  - MENSTRUATION DELAYED [None]
  - MUSCULOSKELETAL PAIN [None]
